FAERS Safety Report 6355715-5 (Version None)
Quarter: 2009Q3

REPORT INFORMATION
  Report Type: 
  Country: None (occurrence: None)
  Receive Date: 20090910
  Receipt Date: 20090831
  Transmission Date: 20100115
  Serious: Yes (Death)
  Sender: FDA-Public Use
  Company Number: 2009-03588

PATIENT
  Age: 74 Year
  Sex: Male
  Weight: 83 kg

DRUGS (7)
  1. VELCADE [Suspect]
     Indication: MULTIPLE MYELOMA
     Dosage: 2.4 MG, INTRAVENOUS, 1.93 MG, INTRAVENOUS
     Route: 042
     Dates: start: 20061215, end: 20070515
  2. VELCADE [Suspect]
     Indication: MULTIPLE MYELOMA
     Dosage: 2.4 MG, INTRAVENOUS, 1.93 MG, INTRAVENOUS
     Route: 042
     Dates: start: 20080808, end: 20080818
  3. KYTRIL [Concomitant]
  4. ZOMETA [Concomitant]
  5. MAGNESIUM OXIDE (MAGNESIUM OXIDE) [Concomitant]
  6. MUCOSTA (REBAMIPIDE) [Concomitant]
  7. RHUBARB (RHUBARB DRY EXTRACT) [Concomitant]

REACTIONS (1)
  - DISEASE PROGRESSION [None]
